FAERS Safety Report 25233943 (Version 1)
Quarter: 2025Q2

REPORT INFORMATION
  Report Type: Spontaneous
  Country: US (occurrence: US)
  Receive Date: 20250424
  Receipt Date: 20250424
  Transmission Date: 20250717
  Serious: Yes (Death, Hospitalization)
  Sender: AMGEN
  Company Number: US-AMGEN-USASP2025076625

PATIENT
  Age: 36 Year
  Sex: Female

DRUGS (2)
  1. PREDNISONE [Suspect]
     Active Substance: PREDNISONE
     Indication: Immunosuppressant drug therapy
     Route: 065
  2. CYCLOPHOSPHAMIDE [Concomitant]
     Active Substance: CYCLOPHOSPHAMIDE
     Indication: Immunosuppressant drug therapy
     Route: 065

REACTIONS (10)
  - Cardiac arrest [Fatal]
  - Intestinal ischaemia [Unknown]
  - Septic shock [Unknown]
  - Acute respiratory distress syndrome [Unknown]
  - Dehydration [Unknown]
  - Hypocalcaemia [Unknown]
  - Electrolyte imbalance [Unknown]
  - Seizure [Unknown]
  - Intestinal perforation [Unknown]
  - Gastrointestinal stoma output increased [Unknown]
